FAERS Safety Report 5582471-0 (Version None)
Quarter: 2007Q4

REPORT INFORMATION
  Report Type: 
  Country: None (occurrence: None)
  Receive Date: 20071130
  Receipt Date: 20070302
  Transmission Date: 20080405
  Serious: Yes (Other)
  Sender: FDA-Public Use
  Company Number: WAES 0703USA00324

PATIENT
  Age: 57 Year
  Sex: Female

DRUGS (2)
  1. FOSAMAX [Suspect]
     Dosage: PO
     Route: 048
     Dates: start: 20021001, end: 20050201
  2. THERAPY UNSPECIFIED [Concomitant]

REACTIONS (3)
  - ANXIETY [None]
  - BLOOD CHOLESTEROL INCREASED [None]
  - OSTEONECROSIS [None]
